FAERS Safety Report 13610383 (Version 1)
Quarter: 2017Q2

REPORT INFORMATION
  Report Type: Spontaneous
  Country: FR (occurrence: FR)
  Receive Date: 20170605
  Receipt Date: 20170605
  Transmission Date: 20170830
  Serious: Yes (Hospitalization, Other)
  Sender: FDA-Public Use
  Company Number: FR-SEPTODONT-201704047

PATIENT
  Age: 41 Year
  Sex: Female

DRUGS (1)
  1. SEPTANEST 40 MG/ML ADR?NALIN?E AU 1/200.000 [Suspect]
     Active Substance: ARTICAINE HYDROCHLORIDE\EPINEPHRINE BITARTRATE
     Indication: DENTAL LOCAL ANAESTHESIA
     Dosage: BUCCAL AND LINGUAL INJECTION (1.5 CARTRIDGE)?INJECTION TO THE SPINE OF SPIX (1 CARTRIDGE)
     Route: 004
     Dates: start: 20170522

REACTIONS (4)
  - Dyspnoea [Recovering/Resolving]
  - Tongue discomfort [Recovering/Resolving]
  - Anaphylactic reaction [Recovering/Resolving]
  - Cough [Recovering/Resolving]

NARRATIVE: CASE EVENT DATE: 20170522
